FAERS Safety Report 19095718 (Version 2)
Quarter: 2024Q3

REPORT INFORMATION
  Report Type: Report from Study
  Country: FR (occurrence: FR)
  Receive Date: 20210406
  Receipt Date: 20240810
  Transmission Date: 20241016
  Serious: Yes (Death)
  Sender: ROCHE
  Company Number: FR-SEATTLE GENETICS-2021SGN01458

PATIENT
  Age: 47 Year
  Sex: Female

DRUGS (6)
  1. ADO-TRASTUZUMAB EMTANSINE [Suspect]
     Active Substance: ADO-TRASTUZUMAB EMTANSINE
     Indication: HER2 positive breast cancer
     Dosage: 6 MG/KG, Q3WEEKS
     Route: 042
  2. ADO-TRASTUZUMAB EMTANSINE [Suspect]
     Active Substance: ADO-TRASTUZUMAB EMTANSINE
     Indication: Breast cancer
     Dosage: 8 MG/KG, SINGLE
     Route: 042
  3. CAPECITABINE [Suspect]
     Active Substance: CAPECITABINE
     Indication: HER2 positive breast cancer
     Dosage: 1000 MG/M2, QCYCLE
     Route: 048
  4. CAPECITABINE [Suspect]
     Active Substance: CAPECITABINE
     Indication: Breast cancer
     Route: 048
  5. TUCATINIB [Suspect]
     Active Substance: TUCATINIB
     Indication: HER2 positive breast cancer
     Route: 048
     Dates: start: 20201223, end: 20210106
  6. TUCATINIB [Suspect]
     Active Substance: TUCATINIB
     Indication: Breast cancer

REACTIONS (2)
  - Disease progression [Fatal]
  - Drug ineffective [Unknown]

NARRATIVE: CASE EVENT DATE: 20210106
